FAERS Safety Report 7353956-1 (Version None)
Quarter: 2011Q1

REPORT INFORMATION
  Report Type: 
  Country: None (occurrence: None)
  Receive Date: 20110315
  Receipt Date: 20110301
  Transmission Date: 20110831
  Serious: Yes (Other)
  Sender: FDA-Public Use
  Company Number: PHHY2010BR60965

PATIENT
  Age: 65 Year
  Sex: Female

DRUGS (1)
  1. DIOVAN AMLO [Suspect]
     Dosage: 160/5 MG

REACTIONS (3)
  - HYPERTENSION [None]
  - ARTERIAL OCCLUSIVE DISEASE [None]
  - ARTERIAL CATHETERISATION [None]
